FAERS Safety Report 4398430-X (Version None)
Quarter: 2004Q3

REPORT INFORMATION
  Report Type: 
  Country: None (occurrence: None)
  Receive Date: 20040713
  Receipt Date: 20040630
  Transmission Date: 20050211
  Serious: Yes (Hospitalization)
  Sender: FDA-Public Use
  Company Number: 2004221934CA

PATIENT
  Age: 68 Year
  Sex: Female

DRUGS (4)
  1. SOLU-MEDROL [Suspect]
     Indication: MULTIPLE SCLEROSIS
     Dosage: 1 G, IV
     Route: 042
     Dates: end: 20040601
  2. SYNTHROID [Concomitant]
  3. PREMARIN [Concomitant]
  4. NEURONTIN [Concomitant]

REACTIONS (1)
  - RASH PRURITIC [None]
